FAERS Safety Report 8470633 (Version 2)
Quarter: 2013Q1

REPORT INFORMATION
  Report Type: Spontaneous
  Country: US (occurrence: US)
  Receive Date: 20120321
  Receipt Date: 20130104
  Transmission Date: 20140127
  Serious: No
  Sender: FDA-Public Use
  Company Number: US-PFIZER INC-2012069603

PATIENT
  Age: 50 Year
  Sex: Male
  Weight: 113 kg

DRUGS (3)
  1. DILANTIN [Suspect]
     Indication: CONVULSION
     Dosage: 200 MG, 4X/DAY
     Route: 048
  2. DILANTIN [Suspect]
     Dosage: 200 MG, TOOK IT ONCE
     Route: 048
     Dates: start: 201202, end: 201202
  3. PHENOBARBITAL [Concomitant]
     Indication: CONVULSION
     Dosage: UNK

REACTIONS (2)
  - Poor quality drug administered [Unknown]
  - Dizziness [Unknown]
